FAERS Safety Report 7717305-9 (Version None)
Quarter: 2011Q3

REPORT INFORMATION
  Report Type: 
  Country: None (occurrence: None)
  Receive Date: 20110818
  Receipt Date: 20110720
  Transmission Date: 20111222
  Serious: No
  Sender: FDA-Public Use
  Company Number: 1000022318

PATIENT
  Sex: Female

DRUGS (2)
  1. VIIBRYD [Suspect]
  2. ZOLOFT [Suspect]
     Indication: PREMENSTRUAL SYNDROME
     Dosage: 150 MG (150 MG, 1 IN 1 D)

REACTIONS (2)
  - OBSESSIVE-COMPULSIVE DISORDER [None]
  - PARANOIA [None]
